FAERS Safety Report 23600992 (Version 1)
Quarter: 2024Q1

REPORT INFORMATION
  Report Type: Spontaneous
  Country: FR (occurrence: FR)
  Receive Date: 20240306
  Receipt Date: 20240306
  Transmission Date: 20240410
  Serious: Yes (Other)
  Sender: FDA-Public Use
  Company Number: None

PATIENT

DRUGS (8)
  1. PROPRANOLOL [Suspect]
     Active Substance: PROPRANOLOL HYDROCHLORIDE
     Indication: Ventricular hypertrophy
     Dosage: UNK
     Route: 048
     Dates: start: 20231022, end: 20240130
  2. PROPRANOLOL [Suspect]
     Active Substance: PROPRANOLOL HYDROCHLORIDE
     Indication: Off label use
  3. CAFFEINE CITRATE [Suspect]
     Active Substance: CAFFEINE CITRATE
     Indication: Infantile apnoea
     Dosage: UNK
     Route: 048
     Dates: start: 20230912, end: 20240110
  4. METHOTREXATE [Suspect]
     Active Substance: METHOTREXATE
     Indication: Immunomodulatory therapy
     Dosage: 0.4 MG/KG PER DAY
     Route: 058
     Dates: start: 20231018, end: 20231020
  5. METHOTREXATE [Suspect]
     Active Substance: METHOTREXATE
     Dosage: 0.4 MG/KG PER DAY
     Route: 058
     Dates: start: 20231030, end: 20231101
  6. METHOTREXATE [Suspect]
     Active Substance: METHOTREXATE
     Dosage: 0.4 MG/KG, PER DAY
     Route: 058
     Dates: start: 20231115, end: 20231117
  7. MYOZYME [Suspect]
     Active Substance: ALGLUCOSIDASE ALFA
     Indication: Glycogen storage disease type II
     Dosage: 40 MG/KG/INFUSION EVERY 15 DAYS
     Route: 042
     Dates: start: 20231018, end: 20240124
  8. FOLIC ACID [Concomitant]
     Active Substance: FOLIC ACID
     Indication: Vitamin supplementation
     Dosage: UNK
     Route: 065
     Dates: end: 20240110

REACTIONS (3)
  - Cataract [Not Recovered/Not Resolved]
  - Product use in unapproved indication [Unknown]
  - Off label use [Unknown]

NARRATIVE: CASE EVENT DATE: 20231223
